FAERS Safety Report 9658441 (Version 1)
Quarter: 2013Q4

REPORT INFORMATION
  Report Type: Spontaneous
  Country: US (occurrence: US)
  Receive Date: 20131030
  Receipt Date: 20131030
  Transmission Date: 20140711
  Serious: No
  Sender: FDA-Public Use
  Company Number: US-PURDUE-USA-2012-0084758

PATIENT
  Age: 40 Year
  Sex: Male

DRUGS (2)
  1. OXYCONTIN (NDA 22-272) [Suspect]
     Indication: NECK PAIN
     Dosage: 20 MG, UNK
     Route: 048
     Dates: start: 201108
  2. OXYCONTIN (NDA 22-272) [Suspect]
     Indication: MUSCULOSKELETAL PAIN
     Dosage: 40 MG, UNK
     Route: 048
     Dates: start: 201108

REACTIONS (1)
  - Drug ineffective [Unknown]
